FAERS Safety Report 16405899 (Version 3)
Quarter: 2025Q2

REPORT INFORMATION
  Report Type: Report from Study
  Country: BE (occurrence: BE)
  Receive Date: 20190607
  Receipt Date: 20250422
  Transmission Date: 20250717
  Serious: Yes (Other)
  Sender: PFIZER
  Company Number: BE-ROCHE-1811629

PATIENT
  Age: 70 Year
  Sex: Female
  Weight: 57.3 kg

DRUGS (6)
  1. CARBOPLATIN [Suspect]
     Active Substance: CARBOPLATIN
     Indication: Ovarian cancer
     Dosage: 2.7 AUC ONCE A WEEKDATE OF LAST DOSE PRIOR TO SAE: 26/JUL/2016
     Route: 042
     Dates: start: 20160719, end: 20160726
  2. CARBOPLATIN [Suspect]
     Active Substance: CARBOPLATIN
     Dosage: UNK UNK, WEEKLY
     Route: 042
  3. PACLITAXEL [Suspect]
     Active Substance: PACLITAXEL
     Indication: Ovarian cancer
     Dosage: 60 MG/M2, WEEKLY, DATE OF LAST DOSE PRIOR TO SAE: 26JUL2016
     Route: 042
     Dates: start: 20160719, end: 20160726
  4. PACLITAXEL [Suspect]
     Active Substance: PACLITAXEL
     Dosage: UNK UNK, WEEKLY
     Route: 042
  5. BEVACIZUMAB [Suspect]
     Active Substance: BEVACIZUMAB
     Indication: Ovarian cancer
     Dosage: DATE OF LAST DOSE PRIOR TO SAE: 26/JUL/2016
     Route: 042
     Dates: start: 20160726
  6. BEVACIZUMAB [Suspect]
     Active Substance: BEVACIZUMAB
     Dosage: UNK, EVERY 3 WEEKS
     Route: 042

REACTIONS (27)
  - Neutropenia [Recovered/Resolved]
  - Orthostatic hypotension [Not Recovered/Not Resolved]
  - Constipation [Recovered/Resolved]
  - Asthenia [Not Recovered/Not Resolved]
  - Depressed mood [Recovered/Resolved]
  - Visual impairment [Recovered/Resolved]
  - Dry skin [Recovered/Resolved]
  - Rhinorrhoea [Recovered/Resolved]
  - Epistaxis [Recovered/Resolved]
  - Back pain [Not Recovered/Not Resolved]
  - Tinnitus [Recovered/Resolved]
  - Anaemia [Not Recovered/Not Resolved]
  - Dysphonia [Not Recovered/Not Resolved]
  - Contusion [Recovered/Resolved]
  - Teeth brittle [Recovered/Resolved]
  - Hyperkeratosis [Recovered/Resolved]
  - Gastrooesophageal reflux disease [Not Recovered/Not Resolved]
  - Musculoskeletal stiffness [Recovered/Resolved]
  - Dizziness [Not Recovered/Not Resolved]
  - Muscle spasms [Recovered/Resolved]
  - Urge incontinence [Not Recovered/Not Resolved]
  - Tachycardia [Not Recovered/Not Resolved]
  - Alopecia [Recovered/Resolved]
  - Decreased appetite [Not Recovered/Not Resolved]
  - Balance disorder [Not Recovered/Not Resolved]
  - Epistaxis [Recovered/Resolved]
  - Anaemia [Recovered/Resolved]

NARRATIVE: CASE EVENT DATE: 20160801
